FAERS Safety Report 24330619 (Version 1)
Quarter: 2024Q3

REPORT INFORMATION
  Report Type: Spontaneous
  Country: JP (occurrence: JP)
  Receive Date: 20240918
  Receipt Date: 20240918
  Transmission Date: 20241017
  Serious: Yes (Life-Threatening, Other)
  Sender: ALKEM
  Company Number: JP-ALKEM LABORATORIES LIMITED-JP-ALKEM-2024-20951

PATIENT
  Age: 70 Year
  Sex: Female

DRUGS (5)
  1. TACROLIMUS [Suspect]
     Active Substance: TACROLIMUS
     Indication: Myasthenia gravis
     Dosage: UNK, QD (1-2 MILLIGRAM)
     Route: 065
  2. METHYLPREDNISOLONE [Suspect]
     Active Substance: METHYLPREDNISOLONE
     Indication: Myasthenia gravis
     Dosage: 500 MILLIGRAM, QD (HALF-DOSE) DAYS 190-192
     Route: 042
  3. METHYLPREDNISOLONE [Suspect]
     Active Substance: METHYLPREDNISOLONE
     Dosage: 1000 MG/DAY
     Route: 042
  4. PREDNISOLONE [Suspect]
     Active Substance: PREDNISOLONE
     Indication: Myasthenia gravis
     Dosage: 1.0-10.0 MILLIGRAM
     Route: 048
  5. EFGARTIGIMOD ALFA [Concomitant]
     Active Substance: EFGARTIGIMOD ALFA
     Indication: Myasthenia gravis
     Dosage: 500 MILLIGRAM, QD
     Route: 065

REACTIONS (8)
  - Aphasia [Unknown]
  - Dyspnoea [Recovered/Resolved]
  - Pneumonia aspiration [Unknown]
  - Fatigue [Recovered/Resolved]
  - Camptocormia [Unknown]
  - Eyelid ptosis [Unknown]
  - Hyperglycaemia [Unknown]
  - Treatment noncompliance [Unknown]
